FAERS Safety Report 7105696-1 (Version None)
Quarter: 2010Q4

REPORT INFORMATION
  Report Type: 
  Country: None (occurrence: None)
  Receive Date: 20101116
  Receipt Date: 20101103
  Transmission Date: 20110411
  Serious: Yes (Hospitalization)
  Sender: FDA-Public Use
  Company Number: PHHY2010FR76278

PATIENT
  Sex: Female
  Weight: 50 kg

DRUGS (4)
  1. EXJADE [Suspect]
     Indication: IRON OVERLOAD
     Dosage: UNK
     Dates: start: 20080601, end: 20090801
  2. DESFERAL [Suspect]
     Dosage: 4 G, DAILY
     Route: 042
     Dates: start: 20090730
  3. FERRIPROX [Concomitant]
     Indication: IRON OVERLOAD
     Dosage: 8 TABLETS DAILY 4 DAYS BY WEEK
     Dates: start: 20090501
  4. EPREX [Concomitant]
     Dosage: 1000 IU, UNK

REACTIONS (4)
  - CHILLS [None]
  - KLEBSIELLA SEPSIS [None]
  - MALAISE [None]
  - PYREXIA [None]
